FAERS Safety Report 26087074 (Version 1)
Quarter: 2025Q4

REPORT INFORMATION
  Report Type: Report from Study
  Country: NZ (occurrence: NZ)
  Receive Date: 20251125
  Receipt Date: 20251125
  Transmission Date: 20260117
  Serious: Yes (Other)
  Sender: ROCHE
  Company Number: NZ-ROCHE-10000436554

PATIENT

DRUGS (7)
  1. TRASTUZUMAB [Suspect]
     Active Substance: TRASTUZUMAB
     Indication: Breast cancer
     Route: 065
  2. PERTUZUMAB [Suspect]
     Active Substance: PERTUZUMAB
     Indication: Breast cancer
     Route: 065
  3. FLUOROURACIL [Suspect]
     Active Substance: FLUOROURACIL
     Indication: Breast cancer
     Route: 065
  4. EPIRUBICIN [Suspect]
     Active Substance: EPIRUBICIN
     Indication: Breast cancer
     Route: 065
  5. CYCLOPHOSPHAMIDE [Suspect]
     Active Substance: CYCLOPHOSPHAMIDE
     Indication: Breast cancer
     Route: 065
  6. DOCETAXEL [Suspect]
     Active Substance: DOCETAXEL
     Indication: Breast cancer
     Route: 065
  7. CARBOPLATIN [Suspect]
     Active Substance: CARBOPLATIN
     Indication: Breast cancer
     Route: 065

REACTIONS (15)
  - Diarrhoea [Unknown]
  - Neutropenia [Unknown]
  - Anaemia [Unknown]
  - Febrile neutropenia [Unknown]
  - Pneumonia [Unknown]
  - Mucosal inflammation [Unknown]
  - Pyrexia [Unknown]
  - Vomiting [Unknown]
  - Decreased appetite [Unknown]
  - Arthralgia [Unknown]
  - Myalgia [Unknown]
  - Colitis [Unknown]
  - Bone pain [Unknown]
  - Hyperglycaemia [Unknown]
  - Dyspnoea [Unknown]
